FAERS Safety Report 21602547 (Version 1)
Quarter: 2022Q4

REPORT INFORMATION
  Report Type: Spontaneous
  Country: US (occurrence: US)
  Receive Date: 20221116
  Receipt Date: 20221116
  Transmission Date: 20230113
  Serious: Yes (Hospitalization)
  Sender: FDA-Public Use
  Company Number: US-MYLANLABS-2022M1126949

PATIENT
  Age: 54 Year
  Sex: Male

DRUGS (13)
  1. WARFARIN [Suspect]
     Active Substance: WARFARIN
     Indication: Antiphospholipid syndrome
     Dosage: UNK
     Route: 065
  2. WARFARIN [Suspect]
     Active Substance: WARFARIN
     Indication: Anticoagulant therapy
     Dosage: INITIALLY STOPPED THEN RESTARTED
     Route: 065
  3. HEPARIN [Suspect]
     Active Substance: HEPARIN SODIUM
     Indication: Antiphospholipid syndrome
     Dosage: UNK (INFUSION)
     Route: 042
  4. HEPARIN [Suspect]
     Active Substance: HEPARIN SODIUM
     Indication: Anticoagulant therapy
  5. ENOXAPARIN [Suspect]
     Active Substance: ENOXAPARIN
     Indication: Antiphospholipid syndrome
     Dosage: 1 MILLIGRAM/KILOGRAM, BID (EVERY 12HOUR)
     Route: 042
  6. ENOXAPARIN [Suspect]
     Active Substance: ENOXAPARIN
     Indication: Anticoagulant therapy
  7. ELTROMBOPAG [Concomitant]
     Active Substance: ELTROMBOPAG
     Indication: Thrombocytopenia
     Dosage: UNK
     Route: 065
  8. ROMIPLOSTIM [Concomitant]
     Active Substance: ROMIPLOSTIM
     Indication: Thrombocytopenia
     Dosage: UNK
     Route: 065
  9. RITUXIMAB [Concomitant]
     Active Substance: RITUXIMAB
     Indication: Thrombocytopenia
     Dosage: UNK
     Route: 065
  10. DEXAMETHASONE [Concomitant]
     Active Substance: DEXAMETHASONE
     Indication: Thrombocytopenia
     Dosage: UNK
     Route: 065
  11. Immunoglobulin [Concomitant]
     Indication: Thrombocytopenia
     Dosage: UNK
     Route: 042
  12. HYDROMORPHONE [Concomitant]
     Active Substance: HYDROMORPHONE
     Indication: Analgesic therapy
     Dosage: UNK
     Route: 065
  13. OSELTAMIVIR [Concomitant]
     Active Substance: OSELTAMIVIR
     Indication: Thrombocytopenia
     Dosage: UNK
     Route: 065

REACTIONS (1)
  - Drug ineffective [Unknown]
